FAERS Safety Report 6630888-5 (Version None)
Quarter: 2010Q1

REPORT INFORMATION
  Report Type: 
  Country: None (occurrence: None)
  Receive Date: 20100311
  Receipt Date: 20100224
  Transmission Date: 20100710
  Serious: Yes (Hospitalization, Other)
  Sender: FDA-Public Use
  Company Number: US-CELGENEUS-163-21880-10020748

PATIENT
  Sex: Male
  Weight: 59.928 kg

DRUGS (9)
  1. REVLIMID [Suspect]
     Route: 048
     Dates: start: 20100128, end: 20100204
  2. REVLIMID [Suspect]
     Route: 048
     Dates: start: 20091106
  3. GEMCITABINE [Concomitant]
     Route: 065
     Dates: start: 20100128, end: 20100204
  4. GEMCITABINE [Concomitant]
     Route: 065
     Dates: start: 20091106
  5. COMPAZINE [Concomitant]
     Indication: DRUG USE FOR UNKNOWN INDICATION
     Route: 048
     Dates: start: 20100204
  6. MS CONTIN [Concomitant]
     Indication: DRUG USE FOR UNKNOWN INDICATION
     Route: 048
     Dates: start: 20100204
  7. PREDNISONE [Concomitant]
     Indication: DRUG USE FOR UNKNOWN INDICATION
     Route: 048
     Dates: start: 20100119
  8. ARIXTRA [Concomitant]
     Indication: DRUG USE FOR UNKNOWN INDICATION
     Route: 058
     Dates: start: 20100106
  9. PROTONIX [Concomitant]
     Indication: DRUG USE FOR UNKNOWN INDICATION
     Route: 048
     Dates: start: 20100104

REACTIONS (3)
  - DEHYDRATION [None]
  - DIARRHOEA [None]
  - FAILURE TO THRIVE [None]
